FAERS Safety Report 6590053-7 (Version None)
Quarter: 2010Q1

REPORT INFORMATION
  Report Type: 
  Country: None (occurrence: None)
  Receive Date: 20100219
  Receipt Date: 20100211
  Transmission Date: 20100710
  Serious: Yes (Hospitalization)
  Sender: FDA-Public Use
  Company Number: PHHY2010CA08174

PATIENT
  Sex: Male

DRUGS (2)
  1. EXJADE [Suspect]
     Indication: COLD TYPE HAEMOLYTIC ANAEMIA
     Dosage: 1000 MG, QD
     Route: 048
     Dates: start: 20090401
  2. EXJADE [Suspect]
     Indication: BLOOD PRODUCT TRANSFUSION DEPENDENT

REACTIONS (1)
  - SUBDURAL HAEMATOMA [None]
